FAERS Safety Report 9130071 (Version 2)
Quarter: 2013Q2

REPORT INFORMATION
  Report Type: Spontaneous
  Country: BR (occurrence: BR)
  Receive Date: 20130228
  Receipt Date: 20130404
  Transmission Date: 20140414
  Serious: Yes (Other)
  Sender: FDA-Public Use
  Company Number: BR-ASTRAZENECA-2013SE11376

PATIENT
  Age: 39 Year
  Sex: Male
  Weight: 68 kg

DRUGS (3)
  1. ATACAND HCT [Suspect]
     Indication: HYPERTENSION
     Dosage: 16/12.5 MG, DAILY
     Route: 048
     Dates: start: 2009, end: 20130217
  2. ATACAND COMB [Suspect]
     Indication: HYPERTENSION
     Dosage: 16 MG/5 MG, DAILY
     Route: 048
     Dates: start: 20130218, end: 20130318
  3. LIPLESS [Concomitant]
     Indication: BLOOD TRIGLYCERIDES INCREASED
     Route: 048
     Dates: start: 2010

REACTIONS (5)
  - Hypertension [Recovering/Resolving]
  - Blood triglycerides increased [Recovering/Resolving]
  - Intervertebral disc protrusion [Recovered/Resolved]
  - Spinal pain [Recovering/Resolving]
  - Drug ineffective [Unknown]
